FAERS Safety Report 9649379 (Version 2)
Quarter: 2013Q4

REPORT INFORMATION
  Report Type: Spontaneous
  Country: GB (occurrence: GB)
  Receive Date: 20131028
  Receipt Date: 20131227
  Transmission Date: 20140711
  Serious: Yes (Hospitalization)
  Sender: FDA-Public Use
  Company Number: GB-ACTAVIS-2013-19507

PATIENT
  Age: 57 Year
  Sex: Female

DRUGS (5)
  1. DOCETAXEL (UNKNOWN) [Suspect]
     Indication: BREAST CANCER
     Dosage: UNK
     Route: 065
  2. PERTUZUMAB [Suspect]
     Indication: BREAST CANCER
     Dosage: 420 MG, 1/ THREE WEEKS MAINTENANCE DOSE AS PER PROTOCOL
     Route: 042
  3. PERTUZUMAB [Suspect]
     Dosage: 840 MG, LOADING DOSE AS PER PROTOCOL
     Route: 042
  4. TRASTUZUMAB [Suspect]
     Indication: BREAST CANCER
     Dosage: 6 MG/KG, 1/ THREE WEEKS MAINTENANCE DOSE AS PER PROTOCOL
     Route: 042
  5. TRASTUZUMAB [Suspect]
     Dosage: 8 MG/KG, MAINTENANCE DOSE AS PER PROTOCOL
     Route: 042

REACTIONS (1)
  - Neutropenic sepsis [Recovered/Resolved]
